FAERS Safety Report 5837829-9 (Version None)
Quarter: 2008Q3

REPORT INFORMATION
  Report Type: 
  Country: None (occurrence: None)
  Receive Date: 20080808
  Receipt Date: 20080729
  Transmission Date: 20090109
  Serious: Yes (Hospitalization)
  Sender: FDA-Public Use
  Company Number: DE-JNJFOC-20080706935

PATIENT
  Age: 69 Year
  Sex: Female

DRUGS (6)
  1. REMICADE [Suspect]
     Indication: RHEUMATOID ARTHRITIS
     Route: 042
  2. ETANERCEPT [Suspect]
  3. ETANERCEPT [Suspect]
     Indication: RHEUMATOID ARTHRITIS
  4. METHOTREXATE [Suspect]
     Indication: RHEUMATOID ARTHRITIS
  5. ADALIMUMAB [Concomitant]
     Indication: RHEUMATOID ARTHRITIS
  6. KINERET [Concomitant]
     Indication: RHEUMATOID ARTHRITIS

REACTIONS (1)
  - RECTAL CANCER STAGE III [None]
